FAERS Safety Report 9242681 (Version 1)
Quarter: 2013Q2

REPORT INFORMATION
  Report Type: Spontaneous
  Country: IT (occurrence: IT)
  Receive Date: 20130419
  Receipt Date: 20130419
  Transmission Date: 20140414
  Serious: Yes (Hospitalization)
  Sender: FDA-Public Use
  Company Number: IT-GLAXOSMITHKLINE-B0885337A

PATIENT
  Age: 65 Year
  Sex: Female

DRUGS (2)
  1. ARIXTRA [Suspect]
     Indication: THROMBOSIS PROPHYLAXIS
     Dosage: 2.5MG PER DAY
     Route: 058
     Dates: start: 20130301, end: 20130321
  2. CLEXANE [Suspect]
     Indication: DEEP VEIN THROMBOSIS
     Dosage: 8000IU PER DAY
     Route: 058
     Dates: start: 20130321, end: 20130323

REACTIONS (3)
  - Retroperitoneal haematoma [Recovering/Resolving]
  - Abdominal wall haematoma [Recovering/Resolving]
  - Shock haemorrhagic [Recovering/Resolving]
